FAERS Safety Report 4317914-3 (Version None)
Quarter: 2004Q1

REPORT INFORMATION
  Report Type: 
  Country: None (occurrence: None)
  Receive Date: 20040316
  Receipt Date: 20040220
  Transmission Date: 20041129
  Serious: Yes (Death)
  Sender: FDA-Public Use
  Company Number: US-ROCHE-361195

PATIENT
  Age: 65 Year
  Sex: Male
  Weight: 51.7 kg

DRUGS (8)
  1. CAPECITABINE [Suspect]
     Dosage: ACTUAL DOSE:1600 MG TWICE DAILY.INTERMITTENT TREATMENT OF TWO WEEKS TREATMENT ONE WEEKS REST.
     Route: 048
     Dates: start: 20031211, end: 20040223
  2. OXALIPLATIN [Suspect]
     Dosage: ACTUAL DOSE:193 MG
     Route: 042
     Dates: start: 20031211, end: 20040223
  3. DARVOCET [Concomitant]
  4. COMPAZINE [Concomitant]
  5. EPOGEN [Concomitant]
     Dates: start: 20031216
  6. MEGACE [Concomitant]
  7. OXYCONTIN [Concomitant]
  8. LOMOTIL [Concomitant]
     Dates: start: 20040211

REACTIONS (11)
  - ABDOMINAL PAIN [None]
  - AZOTAEMIA [None]
  - BLOOD ALBUMIN DECREASED [None]
  - BLOOD BILIRUBIN INCREASED [None]
  - BLOOD CREATININE INCREASED [None]
  - BLOOD GLUCOSE DECREASED [None]
  - DEHYDRATION [None]
  - DIARRHOEA [None]
  - NAUSEA [None]
  - PNEUMONIA [None]
  - VOMITING [None]
